FAERS Safety Report 7429680-3 (Version None)
Quarter: 2011Q2

REPORT INFORMATION
  Report Type: 
  Country: None (occurrence: None)
  Receive Date: 20110421
  Receipt Date: 20110419
  Transmission Date: 20111010
  Serious: Yes (Other)
  Sender: FDA-Public Use
  Company Number: CA-PFIZER INC-2010070004

PATIENT
  Age: 59 Year
  Sex: Female
  Weight: 68.027 kg

DRUGS (3)
  1. LIPITOR [Suspect]
     Indication: BLOOD CHOLESTEROL
     Dosage: 10 MG, 1X/DAY
     Dates: start: 20010101, end: 20010207
  2. PROMETRIUM [Concomitant]
     Dosage: 100 MG, 1X/DAY
     Dates: start: 19990327
  3. OGEN [Concomitant]
     Dosage: 0.625 MG, 1X/DAY
     Dates: start: 19990327

REACTIONS (8)
  - RASH [None]
  - THERMAL BURN [None]
  - PRURITUS [None]
  - PYREXIA [None]
  - MYALGIA [None]
  - EYE OEDEMA [None]
  - HOT FLUSH [None]
  - HYPERVENTILATION [None]
